FAERS Safety Report 14210775 (Version 1)
Quarter: 2017Q4

REPORT INFORMATION
  Report Type: Spontaneous
  Country: US (occurrence: US)
  Receive Date: 20171121
  Receipt Date: 20171121
  Transmission Date: 20180321
  Serious: No
  Sender: FDA-Public Use
  Company Number: US-BAUSCH-BL-2016-030235

PATIENT
  Age: 58 Year
  Sex: Female
  Weight: 64.01 kg

DRUGS (1)
  1. LOTEMAX [Suspect]
     Active Substance: LOTEPREDNOL ETABONATE
     Indication: PROPHYLAXIS
     Dosage: ONE DROP FOUR TIMES A DAY IN BOTH EYES
     Route: 047
     Dates: start: 20161020, end: 201611

REACTIONS (2)
  - Off label use [Recovered/Resolved]
  - Intraocular pressure increased [Not Recovered/Not Resolved]

NARRATIVE: CASE EVENT DATE: 2016
